FAERS Safety Report 21685366 (Version 1)
Quarter: 2022Q4

REPORT INFORMATION
  Report Type: Spontaneous
  Country: US (occurrence: None)
  Receive Date: 20221206
  Receipt Date: 20221206
  Transmission Date: 20230113
  Serious: Yes (Other)
  Sender: FDA-Public Use
  Company Number: US-Hikma Pharmaceuticals USA Inc.-US-H14001-22-03062

PATIENT
  Sex: Male

DRUGS (1)
  1. AMIKACIN [Suspect]
     Active Substance: AMIKACIN
     Indication: Product used for unknown indication
     Dosage: UNKNOWN
     Route: 065

REACTIONS (1)
  - Pathogen resistance [Unknown]
